FAERS Safety Report 12988121 (Version 1)
Quarter: 2016Q4

REPORT INFORMATION
  Report Type: Spontaneous
  Country: US (occurrence: US)
  Receive Date: 20161130
  Receipt Date: 20161130
  Transmission Date: 20170207
  Serious: Yes (Other)
  Sender: FDA-Public Use
  Company Number: US-B.I. PHARMACEUTICALS,INC./RIDGEFIELD-2016-BI-080749

PATIENT
  Age: 45 Year
  Sex: Female
  Weight: 52.1 kg

DRUGS (5)
  1. REMODULIN [Suspect]
     Active Substance: TREPROSTINIL
     Dosage: DOSE: 0.134 UG/KG
     Route: 042
     Dates: start: 20140723
  2. OPSUMIT [Concomitant]
     Active Substance: MACITENTAN
     Indication: PRODUCT USED FOR UNKNOWN INDICATION
     Route: 065
  3. DULCOLAX NOS [Suspect]
     Active Substance: BISACODYL OR DOCUSATE SODIUM
     Indication: CONSTIPATION
     Route: 065
  4. REMODULIN [Suspect]
     Active Substance: TREPROSTINIL
     Indication: PULMONARY ARTERIAL HYPERTENSION
     Dosage: UNIT DOSE: 0.107 UG/KG
     Route: 042
     Dates: start: 20140723
  5. REMODULIN [Suspect]
     Active Substance: TREPROSTINIL
     Dosage: DOSE: 0.112 UG/KG
     Route: 042
     Dates: start: 20140723

REACTIONS (9)
  - Presyncope [Unknown]
  - Abdominal discomfort [Not Recovered/Not Resolved]
  - Hot flush [Unknown]
  - Liver disorder [Unknown]
  - Heart rate increased [Unknown]
  - Vomiting [Unknown]
  - Hypotension [Unknown]
  - Haematochezia [Unknown]
  - Constipation [Unknown]

NARRATIVE: CASE EVENT DATE: 201606
